FAERS Safety Report 6581395-X (Version None)
Quarter: 2010Q1

REPORT INFORMATION
  Report Type: 
  Country: None (occurrence: None)
  Receive Date: 20100203
  Receipt Date: 20100119
  Transmission Date: 20100710
  Serious: No
  Sender: FDA-Public Use
  Company Number: 008597

PATIENT
  Age: 72 Year
  Sex: Male

DRUGS (2)
  1. PLETAL [Suspect]
     Indication: ARTERIOSCLEROSIS OBLITERANS
     Dosage: 100 MG, DAILY DOSE; ORAL, 100 MG, BID; ORAL
     Route: 048
     Dates: start: 20100114, end: 20100115
  2. PLETAL [Suspect]
     Indication: ARTERIOSCLEROSIS OBLITERANS
     Dosage: 100 MG, DAILY DOSE; ORAL, 100 MG, BID; ORAL
     Route: 048
     Dates: start: 20100116

REACTIONS (3)
  - CHEST PAIN [None]
  - LOSS OF CONSCIOUSNESS [None]
  - TACHYCARDIA [None]
